FAERS Safety Report 12619715 (Version 1)
Quarter: 2016Q3

REPORT INFORMATION
  Report Type: Spontaneous
  Country: IT (occurrence: IT)
  Receive Date: 20160803
  Receipt Date: 20160803
  Transmission Date: 20161109
  Serious: Yes (Death)
  Sender: FDA-Public Use
  Company Number: PHHY2016IT103517

PATIENT
  Age: 77 Year
  Sex: Female

DRUGS (3)
  1. ACETYLSALICYLIC ACID [Suspect]
     Active Substance: ASPIRIN
     Indication: CORONARY ARTERIAL STENT INSERTION
     Route: 048
     Dates: start: 20160722, end: 20160722
  2. CLOPIDOGREL [Suspect]
     Active Substance: CLOPIDOGREL BISULFATE
     Indication: CORONARY ARTERIAL STENT INSERTION
     Route: 048
     Dates: start: 20160722, end: 20160722
  3. ENOXAPARIN [Suspect]
     Active Substance: ENOXAPARIN
     Indication: CORONARY ARTERIAL STENT INSERTION
     Route: 058
     Dates: start: 20160722, end: 20160722

REACTIONS (2)
  - Cerebral haemorrhage [Fatal]
  - Subdural haematoma [Fatal]

NARRATIVE: CASE EVENT DATE: 20160722
